FAERS Safety Report 7027053-9 (Version None)
Quarter: 2010Q4

REPORT INFORMATION
  Report Type: 
  Country: None (occurrence: None)
  Receive Date: 20101004
  Receipt Date: 20100924
  Transmission Date: 20110411
  Serious: Yes (Other)
  Sender: FDA-Public Use
  Company Number: US-AMGEN-KDL441131

PATIENT
  Sex: Female

DRUGS (1)
  1. ENBREL [Suspect]
     Indication: RHEUMATOID ARTHRITIS
     Route: 058
     Dates: start: 20100505

REACTIONS (5)
  - ERYTHEMA [None]
  - LOCAL SWELLING [None]
  - WOUND [None]
  - WOUND COMPLICATION [None]
  - WOUND SECRETION [None]
